FAERS Safety Report 17128789 (Version 1)
Quarter: 2019Q4

REPORT INFORMATION
  Report Type: Report from Study
  Country: DE (occurrence: DE)
  Receive Date: 20191209
  Receipt Date: 20191209
  Transmission Date: 20200122
  Serious: Yes (Other)
  Sender: FDA-Public Use
  Company Number: DE-MYLANLABS-2019M1120741

PATIENT
  Sex: Female

DRUGS (3)
  1. TRIHEXYPHENIDYL [Concomitant]
     Active Substance: TRIHEXYPHENIDYL
     Indication: DYSTONIA
     Dosage: INITIALLY AT UNKNOWN DOSE
     Route: 065
  2. TRIHEXYPHENIDYL [Concomitant]
     Active Substance: TRIHEXYPHENIDYL
     Dosage: HIGH DOSES OF TRIHEXYPHENID..
     Route: 065
  3. PRAMIPEXOLE. [Suspect]
     Active Substance: PRAMIPEXOLE
     Indication: DYSTONIA
     Route: 065

REACTIONS (3)
  - Sedation [Unknown]
  - Drug ineffective [Unknown]
  - Constipation [Unknown]
